FAERS Safety Report 23521537 (Version 2)
Quarter: 2024Q2

REPORT INFORMATION
  Report Type: Spontaneous
  Country: CA (occurrence: CA)
  Receive Date: 20240214
  Receipt Date: 20240619
  Transmission Date: 20240716
  Serious: Yes (Death, Other)
  Sender: FDA-Public Use
  Company Number: CA-HLS-202400382

PATIENT
  Age: 84 Year
  Sex: Male
  Weight: 63 kg

DRUGS (7)
  1. CLOZAPINE [Suspect]
     Active Substance: CLOZAPINE
     Indication: Product used for unknown indication
     Dosage: 7.0 MONTHS
     Route: 065
  2. CLOZAPINE [Suspect]
     Active Substance: CLOZAPINE
     Indication: Product used for unknown indication
     Dosage: TABLETS DOSAGE FORM
     Route: 065
  3. DONEPEZIL [Concomitant]
     Active Substance: DONEPEZIL\DONEPEZIL HYDROCHLORIDE
     Dosage: TABLETS DOSAGE FORM?THERAPY DURATION: 7 MONTHS
     Route: 065
  4. FINASTERIDE [Concomitant]
     Active Substance: FINASTERIDE
     Dosage: TABLETS DOSAGE FORM?THERAPY DURATION: 7 MONTHS
     Route: 065
  5. HYDROMORPHONE [Concomitant]
     Active Substance: HYDROMORPHONE
     Dosage: NOT SPECIFIED DOSAGE FORM?THERAPY DURATION: 7 MONTHS
     Route: 065
  6. SERTRALINE [Concomitant]
     Active Substance: SERTRALINE HYDROCHLORIDE
     Dosage: CAPSULES DOSAGE FORM?THERAPY DURATION: 7 MONTHS
     Route: 065
  7. TAMSULOSIN [Concomitant]
     Active Substance: TAMSULOSIN
     Dosage: NOT SPECIFIED DOSAGE FORM?THERAPY DURATION: 7 MONTHS
     Route: 065

REACTIONS (8)
  - Anaemia [Fatal]
  - Bedridden [Fatal]
  - Chronic kidney disease [Fatal]
  - Death [Fatal]
  - Decreased appetite [Fatal]
  - Dysphagia [Fatal]
  - Palliative care [Fatal]
  - Spinal fracture [Fatal]
